FAERS Safety Report 14838976 (Version 1)
Quarter: 2018Q2

REPORT INFORMATION
  Report Type: Spontaneous
  Country: CZ (occurrence: CZ)
  Receive Date: 20180502
  Receipt Date: 20180502
  Transmission Date: 20180711
  Serious: Yes (Hospitalization)
  Sender: FDA-Public Use
  Company Number: CZ-MYLANLABS-2018M1027152

PATIENT
  Age: 42 Year
  Sex: Male

DRUGS (2)
  1. BACLOFEN. [Suspect]
     Active Substance: BACLOFEN
     Indication: SPINAL PAIN
     Dosage: UNK
     Route: 048
  2. CLONAZEPAM. [Suspect]
     Active Substance: CLONAZEPAM
     Indication: SPINAL PAIN
     Dosage: UNK
     Route: 048

REACTIONS (12)
  - Agitation [Unknown]
  - Toxicity to various agents [Unknown]
  - Confusional state [Unknown]
  - Drug abuse [Unknown]
  - Coma [Recovering/Resolving]
  - Dysarthria [Unknown]
  - Encephalopathy [Unknown]
  - Overdose [Unknown]
  - Sinus bradycardia [Unknown]
  - Headache [Unknown]
  - Somnolence [Unknown]
  - Seizure [Unknown]
